FAERS Safety Report 9457268 (Version 2)
Quarter: 2013Q3

REPORT INFORMATION
  Report Type: Report from Study
  Country: BR (occurrence: BR)
  Receive Date: 20130814
  Receipt Date: 20130909
  Transmission Date: 20140515
  Serious: Yes (Hospitalization, Other)
  Sender: FDA-Public Use
  Company Number: PHHY2013BR085859

PATIENT
  Sex: Male

DRUGS (3)
  1. DIOVAN AMLO FIX [Suspect]
     Indication: HYPERTENSION
     Dosage: 1 DF, (320 MG VALS, 5 MG AMLO) IN THE MORNING
     Dates: end: 20130711
  2. DIOVAN AMLO FIX [Suspect]
     Dosage: 1 DF, (320 MG VALS, 5 MG AMLO)
  3. GALVUS MET [Suspect]
     Indication: DIABETES MELLITUS
     Dosage: 1 DF, (1000 MG METF, 50 MG VILD) AT LUNCH
     Dates: start: 20130427

REACTIONS (2)
  - Abdominal discomfort [Recovering/Resolving]
  - Urticaria [Recovering/Resolving]
